FAERS Safety Report 14346953 (Version 3)
Quarter: 2018Q1

REPORT INFORMATION
  Report Type: Report from Study
  Country: BR (occurrence: BR)
  Receive Date: 20180103
  Receipt Date: 20180115
  Transmission Date: 20180509
  Serious: Yes (Hospitalization)
  Sender: FDA-Public Use
  Company Number: PHHY2017BR166292

PATIENT
  Sex: Male
  Weight: 85.4 kg

DRUGS (7)
  1. COSENTYX [Suspect]
     Active Substance: SECUKINUMAB
     Indication: PSORIASIS
     Dosage: 300 MG, QMO
     Route: 058
     Dates: start: 20161130
  2. NPH INSULIN [Concomitant]
     Active Substance: INSULIN BEEF
     Indication: HYPERTENSION
     Dosage: 95 IU, QD (45 UI IN THE MORNING AND 50UI AT NIGHT)
     Route: 048
  3. CLONAZEPAM. [Concomitant]
     Active Substance: CLONAZEPAM
     Indication: OBSESSIVE-COMPULSIVE DISORDER
     Dosage: 2 DF (2MG), QD (2 TABLETS AT NIGHT)
     Route: 048
     Dates: start: 1998
  4. ENALAPRIL [Concomitant]
     Active Substance: ENALAPRIL
     Indication: HYPERTENSION
     Dosage: 2 DF (10MG), QD
     Route: 048
  5. COSENTYX [Suspect]
     Active Substance: SECUKINUMAB
     Indication: PSORIATIC ARTHROPATHY
     Dosage: 300 MG, QMO (2 PENS A MONTH)
     Route: 058
  6. CLOMIPRAMINE [Concomitant]
     Active Substance: CLOMIPRAMINE
     Indication: OBSESSIVE-COMPULSIVE DISORDER
     Dosage: 2 DF, QD (8 TABLETS A DAY)
     Route: 048
     Dates: start: 1999
  7. ATORVASTATIN [Concomitant]
     Active Substance: ATORVASTATIN
     Indication: BLOOD CHOLESTEROL ABNORMAL
     Dosage: 1 DF (10MG), BID (1 TABLET IN MORNING AND 1 AT NIGHT)
     Route: 048

REACTIONS (18)
  - Infection [Unknown]
  - Diabetes mellitus [Recovering/Resolving]
  - Abdominal distension [Unknown]
  - Skin disorder [Unknown]
  - Limb discomfort [Unknown]
  - Malaise [Unknown]
  - Swelling [Recovering/Resolving]
  - Atrophy [Unknown]
  - Psoriasis [Recovering/Resolving]
  - Pain [Recovering/Resolving]
  - Pain in extremity [Not Recovered/Not Resolved]
  - Wound [Recovering/Resolving]
  - Foot deformity [Not Recovered/Not Resolved]
  - Cellulitis [Unknown]
  - Inappropriate schedule of drug administration [Unknown]
  - Condition aggravated [Unknown]
  - Nail disorder [Not Recovered/Not Resolved]
  - Arthropathy [Unknown]
